FAERS Safety Report 18946578 (Version 5)
Quarter: 2022Q3

REPORT INFORMATION
  Report Type: Spontaneous
  Country: US (occurrence: US)
  Receive Date: 20210226
  Receipt Date: 20220920
  Transmission Date: 20221026
  Serious: Yes (Other)
  Sender: FDA-Public Use
  Company Number: US-PFIZER INC-2019258444

PATIENT
  Age: 64 Year
  Sex: Female

DRUGS (6)
  1. LYRICA [Suspect]
     Active Substance: PREGABALIN
     Indication: Fibromyalgia
     Dosage: 100 MG, 2X/DAY
     Route: 048
  2. LYRICA [Suspect]
     Active Substance: PREGABALIN
     Indication: Spondylitis
     Dosage: 100 MG, 3X/DAY
     Route: 048
  3. LYRICA [Suspect]
     Active Substance: PREGABALIN
     Indication: Periprosthetic fracture
     Dosage: 150 MG, 4X/DAY (1 CAP FOUR TIMES A DAY)
     Route: 048
  4. LYRICA [Suspect]
     Active Substance: PREGABALIN
     Indication: Arthropathy
     Dosage: 150 MG (ONE CAPSULE), 3X/DAY
     Route: 048
  5. LYRICA [Suspect]
     Active Substance: PREGABALIN
     Indication: Restless legs syndrome
     Dosage: 200 MG, 3X/DAY, (TAKE 1 CAPSULE (200 MG TOTAL) BY MOUTH 3 (THREE) TIMES DAILY)
     Route: 048
  6. LYRICA [Suspect]
     Active Substance: PREGABALIN
     Indication: Lumbar spinal stenosis

REACTIONS (3)
  - Transient ischaemic attack [Unknown]
  - Confusional state [Unknown]
  - Off label use [Unknown]

NARRATIVE: CASE EVENT DATE: 20210215
